FAERS Safety Report 6707568-0 (Version None)
Quarter: 2010Q2

REPORT INFORMATION
  Report Type: 
  Country: None (occurrence: None)
  Receive Date: 20100503
  Receipt Date: 20100421
  Transmission Date: 20101027
  Serious: No
  Sender: FDA-Public Use
  Company Number: CA-ELI_LILLY_AND_COMPANY-CA201004006439

PATIENT
  Sex: Male
  Weight: 88.889 kg

DRUGS (2)
  1. CIALIS [Suspect]
     Dosage: 20 MG, AS NEEDED
     Dates: start: 20100401
  2. ALCOHOL [Concomitant]

REACTIONS (10)
  - DRUG INTERACTION [None]
  - GASTROOESOPHAGEAL REFLUX DISEASE [None]
  - HEART RATE INCREASED [None]
  - HYPERHIDROSIS [None]
  - INTRAOCULAR PRESSURE INCREASED [None]
  - NAUSEA [None]
  - PHOTOPHOBIA [None]
  - SCIATICA [None]
  - TINNITUS [None]
  - VOMITING [None]
